FAERS Safety Report 13423098 (Version 1)
Quarter: 2017Q2

REPORT INFORMATION
  Report Type: Spontaneous
  Country: GB (occurrence: GB)
  Receive Date: 20170410
  Receipt Date: 20170410
  Transmission Date: 20170830
  Serious: Yes (Death, Hospitalization, Other)
  Sender: FDA-Public Use
  Company Number: GB-WEST-WARD PHARMACEUTICALS CORP.-GB-MHRA-21963844

PATIENT
  Age: 9 Month
  Sex: Female

DRUGS (7)
  1. ERYTHROMYCIN. [Suspect]
     Active Substance: ERYTHROMYCIN
     Indication: VIRAL UPPER RESPIRATORY TRACT INFECTION
     Route: 065
     Dates: start: 20121126
  2. BUCCOLAM OROMUCOSAL SOLUTION [Suspect]
     Active Substance: MIDAZOLAM HYDROCHLORIDE
     Indication: SEIZURE
     Route: 002
     Dates: start: 20121127, end: 20121127
  3. EPILIM [Suspect]
     Active Substance: VALPROATE SODIUM
     Indication: SEIZURE
     Route: 048
     Dates: start: 20120718, end: 20121127
  4. KEPPRA [Suspect]
     Active Substance: LEVETIRACETAM
     Indication: EPILEPSY
     Route: 048
     Dates: start: 20120709, end: 20121127
  5. PARACETAMOL [Concomitant]
     Active Substance: ACETAMINOPHEN
     Indication: PRODUCT USED FOR UNKNOWN INDICATION
     Route: 065
  6. PHENYTOIN. [Suspect]
     Active Substance: PHENYTOIN
     Indication: SEIZURE
     Route: 042
     Dates: start: 20121127, end: 20121127
  7. DIAZEPAM. [Concomitant]
     Active Substance: DIAZEPAM
     Indication: SEIZURE
     Route: 054

REACTIONS (7)
  - Tachycardia [Not Recovered/Not Resolved]
  - Drug interaction [Unknown]
  - Cardiac arrest [Fatal]
  - Respiratory acidosis [Fatal]
  - Prescribed overdose [Unknown]
  - Hypoventilation [Not Recovered/Not Resolved]
  - Drug ineffective [Fatal]

NARRATIVE: CASE EVENT DATE: 20121127
